FAERS Safety Report 26181162 (Version 1)
Quarter: 2025Q4

REPORT INFORMATION
  Report Type: Spontaneous
  Country: US (occurrence: US)
  Receive Date: 20251221
  Receipt Date: 20251221
  Transmission Date: 20260117
  Serious: No
  Sender: AZURITY PHARMACEUTICALS
  Company Number: US-AZURITY-2025BTE00546

PATIENT
  Sex: Female

DRUGS (1)
  1. SUTAB [Suspect]
     Active Substance: MAGNESIUM SULFATE\POTASSIUM CHLORIDE\SODIUM SULFATE
     Dosage: 1X12 TABLETS, 1X
     Dates: start: 20250818

REACTIONS (4)
  - Feeling hot [Not Recovered/Not Resolved]
  - Blood pressure increased [Not Recovered/Not Resolved]
  - Vomiting [Unknown]
  - Drug hypersensitivity [Unknown]

NARRATIVE: CASE EVENT DATE: 20250818
